FAERS Safety Report 7383676-9 (Version None)
Quarter: 2011Q1

REPORT INFORMATION
  Report Type: 
  Country: None (occurrence: None)
  Receive Date: 20110330
  Receipt Date: 20110322
  Transmission Date: 20110831
  Serious: Yes (Life-Threatening, Disabling)
  Sender: FDA-Public Use
  Company Number: JP-ROCHE-745987

PATIENT
  Age: 48 Year
  Sex: Male
  Weight: 83 kg

DRUGS (6)
  1. AVASTIN [Suspect]
     Indication: LARGE INTESTINE CARCINOMA
     Route: 041
     Dates: start: 20090714, end: 20101028
  2. ZOMETA [Suspect]
     Indication: METASTASES TO BONE
     Dosage: DOSAGE IS UNCERTAIN
     Route: 041
     Dates: start: 20100914
  3. XELODA [Concomitant]
     Indication: LARGE INTESTINE CARCINOMA
     Dosage: DRUG REPORTED AS: XELODA 300 DOSAGE IS UNCERTAIN
     Route: 048
     Dates: start: 20100119, end: 20101028
  4. AVASTIN [Suspect]
     Route: 041
     Dates: start: 20100413, end: 20101028
  5. ELPLAT [Suspect]
     Indication: LARGE INTESTINE CARCINOMA
     Dosage: DOSAGE IS UNCERTAIN
     Route: 041
     Dates: start: 20100119
  6. ELPLAT [Suspect]
     Route: 041
     Dates: start: 20090629, end: 20101028

REACTIONS (4)
  - BLOOD CREATININE INCREASED [None]
  - HAEMOLYTIC ANAEMIA [None]
  - DISSEMINATED INTRAVASCULAR COAGULATION [None]
  - RENAL FAILURE ACUTE [None]
